FAERS Safety Report 7313509-8 (Version None)
Quarter: 2011Q1

REPORT INFORMATION
  Report Type: 
  Country: None (occurrence: None)
  Receive Date: 20110225
  Receipt Date: 20110217
  Transmission Date: 20110831
  Serious: Yes (Other)
  Sender: FDA-Public Use
  Company Number: JP-B.I. PHARMACEUTICALS,INC./RIDGEFIELD-2010-BP-14646NB

PATIENT
  Sex: Male
  Weight: 69.7 kg

DRUGS (18)
  1. ADALAT CC [Concomitant]
     Indication: HYPERTENSION
     Dosage: 40 MG
     Route: 048
     Dates: start: 20101111
  2. CRAVIT [Concomitant]
     Indication: INFECTION PROPHYLAXIS
     Dosage: 250 MG
     Route: 048
     Dates: start: 20101118
  3. URINORM [Concomitant]
     Indication: HYPERURICAEMIA
     Dosage: 50 MG
     Route: 048
  4. MAGMITT [Concomitant]
     Indication: CONSTIPATION
     Dosage: 1980 MG
     Route: 048
  5. URIEF [Concomitant]
     Indication: BENIGN PROSTATIC HYPERPLASIA
     Dosage: 8 MG
  6. MICOMBI COMBINATION [Suspect]
     Indication: HYPERTENSION
     Dosage: 1 DF
     Route: 048
     Dates: start: 20101111, end: 20101124
  7. LASIX [Concomitant]
     Indication: HYPERTENSION
     Dosage: 20 MG
     Route: 048
     Dates: start: 20101027
  8. VFEND [Concomitant]
     Dosage: 400 MG
     Route: 048
     Dates: start: 20100616
  9. METHYLCOBAL [Concomitant]
     Indication: NEUROPATHY PERIPHERAL
     Dosage: 1000 MCG
     Route: 048
  10. KLARICID [Concomitant]
     Indication: INFECTION PROPHYLAXIS
     Dosage: 200 MG
     Route: 048
     Dates: start: 20100701
  11. PERSANTIN [Concomitant]
     Dosage: 75 MG
     Route: 048
  12. BACTRIM [Concomitant]
     Indication: INFECTION PROPHYLAXIS
     Route: 048
     Dates: start: 20100624
  13. NEUFAN [Concomitant]
     Indication: HYPERURICAEMIA
     Dosage: 100 MG
     Route: 048
  14. MEROPEN [Concomitant]
     Indication: INFECTION
     Dates: start: 20101122
  15. PARIET [Concomitant]
     Indication: REFLUX OESOPHAGITIS
     Dosage: 10 MG
     Route: 048
  16. VESICARE [Concomitant]
     Indication: POLLAKIURIA
     Dosage: 5 MG
     Route: 048
  17. KAYEXALATE [Concomitant]
     Indication: HYPERKALAEMIA
     Dosage: 30 G
     Route: 048
  18. BROACT [Concomitant]
     Dosage: 2 G

REACTIONS (2)
  - OEDEMA [None]
  - PLEURAL EFFUSION [None]
